FAERS Safety Report 6498750-9 (Version None)
Quarter: 2009Q4

REPORT INFORMATION
  Report Type: 
  Country: None (occurrence: None)
  Receive Date: 20091215
  Receipt Date: 20091201
  Transmission Date: 20100525
  Serious: Yes (Hospitalization)
  Sender: FDA-Public Use
  Company Number: PHEH2009US16224

PATIENT
  Sex: Female
  Weight: 104.31 kg

DRUGS (27)
  1. RECLAST [Suspect]
     Indication: OSTEOPOROSIS
     Dosage: 5 MG, ONCE/SINGLE
     Route: 042
     Dates: start: 20091028
  2. REMICADE [Concomitant]
  3. NORVASC [Concomitant]
     Indication: BLOOD PRESSURE
     Dosage: 10 MG, UNK
  4. FUROSEMIDE [Concomitant]
     Indication: BLOOD PRESSURE
     Dosage: 40 MG, UNK
  5. KLOR-CON [Concomitant]
     Indication: BLOOD PRESSURE
     Dosage: 20 MG, UNK
  6. DIOVAN HCT [Concomitant]
     Indication: BLOOD PRESSURE
     Dosage: 320/25
  7. BYSTOLIC [Concomitant]
     Indication: BLOOD PRESSURE
     Dosage: 5 MG, UNK
  8. CRESTOR [Concomitant]
     Dosage: 20 MG, UNK
  9. PLAVIX [Concomitant]
     Dosage: 75 MG, UNK
  10. PREMARIN [Concomitant]
     Dosage: .9 MG, UNK
  11. PREDNISONE [Concomitant]
     Indication: TEMPORAL ARTERITIS
     Dosage: 3 MG, QD
  12. METHOTREXATE [Concomitant]
     Dosage: 20 MG, QW
  13. FOLIC ACID [Concomitant]
     Dosage: 1 MG, QD
  14. XANAX [Concomitant]
     Indication: ANXIETY
     Dosage: .5 MG 1.5 TABLETS DAILY
  15. AMITRIPTYLINE [Concomitant]
     Dosage: .25 MG, UNK
  16. PREVACID [Concomitant]
     Dosage: 30 MG, QD
  17. XALATAN [Concomitant]
     Indication: GLAUCOMA
     Dosage: 005 DROP DAILY
  18. TIMOLOL [Concomitant]
     Indication: GLAUCOMA
     Dosage: .5 DAILY
  19. FLUCONAZOLE [Concomitant]
  20. MULTI-VIT [Concomitant]
  21. VITAMIN D [Concomitant]
     Dosage: 2000 UNK, QD
  22. ELAVIL [Concomitant]
     Dosage: 25 MG, QD
  23. PROTONIX [Concomitant]
     Dosage: 40 MG, QD
  24. LEVOTHYROXINE SODIUM [Concomitant]
  25. DARVOCET-N 100 [Concomitant]
     Dosage: UNK
  26. SYNTHROID [Concomitant]
     Dosage: 88 MCG PER DAY
  27. CALCIUM [Concomitant]

REACTIONS (15)
  - BLOOD GLUCOSE INCREASED [None]
  - BLOOD PARATHYROID HORMONE DECREASED [None]
  - C-REACTIVE PROTEIN INCREASED [None]
  - CARDIAC FAILURE CONGESTIVE [None]
  - CARDIOMEGALY [None]
  - DEHYDRATION [None]
  - DYSPNOEA [None]
  - HYPERCALCAEMIA [None]
  - HYPOCALCAEMIA [None]
  - HYPOKALAEMIA [None]
  - IRON DEFICIENCY ANAEMIA [None]
  - NEPHROPATHY [None]
  - ORTHOSTATIC HYPOTENSION [None]
  - PULMONARY CONGESTION [None]
  - RENAL FAILURE ACUTE [None]
